FAERS Safety Report 6390530-8 (Version None)
Quarter: 2009Q4

REPORT INFORMATION
  Report Type: 
  Country: None (occurrence: None)
  Receive Date: 20091005
  Receipt Date: 20091005
  Transmission Date: 20100525
  Serious: Yes (Hospitalization, Disabling)
  Sender: FDA-Public Use
  Company Number: None

PATIENT
  Age: 51 Year
  Sex: Female
  Weight: 77.1115 kg

DRUGS (1)
  1. LISINOPRIL [Suspect]
     Indication: BLOOD PRESSURE
     Dosage: ONCE DAILY ONE A DAY PO
     Route: 048
     Dates: start: 20090814, end: 20091002

REACTIONS (4)
  - BLOOD PRESSURE INCREASED [None]
  - DEPRESSED LEVEL OF CONSCIOUSNESS [None]
  - IMPAIRED DRIVING ABILITY [None]
  - VISUAL IMPAIRMENT [None]
